FAERS Safety Report 6771311-X (Version None)
Quarter: 2010Q2

REPORT INFORMATION
  Report Type: 
  Country: None (occurrence: None)
  Receive Date: 20100616
  Receipt Date: 20100607
  Transmission Date: 20101027
  Serious: Yes (Other)
  Sender: FDA-Public Use
  Company Number: CA-ASTRAZENECA-2010SE26663

PATIENT
  Age: 68 Year
  Sex: Male
  Weight: 83 kg

DRUGS (5)
  1. CRESTOR [Suspect]
     Route: 048
  2. APO FOLIC ACID [Concomitant]
     Route: 048
  3. APO FUROSEMIDE [Concomitant]
     Route: 048
  4. CLONAZEPAM [Concomitant]
     Route: 048
  5. NOVO-SPIROTON [Concomitant]
     Route: 048

REACTIONS (8)
  - BACK PAIN [None]
  - BLOOD ALKALINE PHOSPHATASE INCREASED [None]
  - BLOOD BILIRUBIN INCREASED [None]
  - HEPATIC ENZYME INCREASED [None]
  - HIGH DENSITY LIPOPROTEIN INCREASED [None]
  - LOW DENSITY LIPOPROTEIN INCREASED [None]
  - PAIN IN EXTREMITY [None]
  - WEIGHT DECREASED [None]
